FAERS Safety Report 15326012 (Version 1)
Quarter: 2018Q3

REPORT INFORMATION
  Report Type: Report from Study
  Country: JP (occurrence: JP)
  Receive Date: 20180828
  Receipt Date: 20180828
  Transmission Date: 20181010
  Serious: Yes (Other)
  Sender: FDA-Public Use
  Company Number: JP-BAYER-2018-075969

PATIENT
  Age: 63 Year
  Sex: Male
  Weight: 53 kg

DRUGS (10)
  1. STIVARGA [Suspect]
     Active Substance: REGORAFENIB
     Indication: GASTROINTESTINAL STROMAL TUMOUR
     Dosage: ADMINISTERED 2WEEKS ON/ 1WEEK OFF
     Route: 048
     Dates: start: 20180104, end: 20180123
  2. STIVARGA [Suspect]
     Active Substance: REGORAFENIB
     Indication: GASTROINTESTINAL STROMAL TUMOUR
     Dosage: ADMINISTERED 2WEEKS ON/ 1WEEK OFF
     Route: 048
     Dates: start: 20180404, end: 20180424
  3. STIVARGA [Suspect]
     Active Substance: REGORAFENIB
     Indication: GASTROINTESTINAL STROMAL TUMOUR
     Dosage: ADMINISTERED 2WEEKS ON/ 1WEEK OFF
     Route: 048
     Dates: start: 20180425, end: 20180515
  4. STIVARGA [Suspect]
     Active Substance: REGORAFENIB
     Indication: GASTROINTESTINAL STROMAL TUMOUR
     Dosage: ADMINISTERED 3WEEKS ON/ 1WEEK OFF
     Route: 048
     Dates: start: 20180124, end: 20180220
  5. STIVARGA [Suspect]
     Active Substance: REGORAFENIB
     Indication: GASTROINTESTINAL STROMAL TUMOUR
     Dosage: ADMINISTERED 2WEEKS ON/ 1WEEK OFF
     Route: 048
     Dates: start: 20180314, end: 20180403
  6. STIVARGA [Suspect]
     Active Substance: REGORAFENIB
     Indication: GASTROINTESTINAL STROMAL TUMOUR
     Dosage: ADMINISTERED 2WEEKS ON/ 2WEEK OFF
     Route: 048
     Dates: start: 20180516, end: 20180612
  7. STIVARGA [Suspect]
     Active Substance: REGORAFENIB
     Indication: GASTROINTESTINAL STROMAL TUMOUR
     Dosage: ADMINISTERED 2WEEKS ON/ 1WEEK OFF
     Route: 048
     Dates: start: 20180221, end: 20180313
  8. STIVARGA [Suspect]
     Active Substance: REGORAFENIB
     Indication: GASTROINTESTINAL STROMAL TUMOUR
     Dosage: ADMINISTERED 2WEEKS ON/ 1WEEK OFF
     Route: 048
     Dates: start: 20171214, end: 20180103
  9. STIVARGA [Suspect]
     Active Substance: REGORAFENIB
     Indication: GASTROINTESTINAL STROMAL TUMOUR
     Dosage: ADMINISTERED 1WEEK ON
     Route: 048
     Dates: start: 20180613, end: 20180619
  10. AMLODIN [Concomitant]
     Active Substance: AMLODIPINE BESYLATE
     Dosage: DAILY DOSE 5 MG
     Route: 048

REACTIONS (5)
  - Hypertension [Recovering/Resolving]
  - Palmar-plantar erythrodysaesthesia syndrome [Recovering/Resolving]
  - Chronic kidney disease [Not Recovered/Not Resolved]
  - Jaundice [Recovering/Resolving]
  - Hypertension [Recovering/Resolving]

NARRATIVE: CASE EVENT DATE: 20171218
